FAERS Safety Report 7432895-1 (Version None)
Quarter: 2011Q2

REPORT INFORMATION
  Report Type: 
  Country: None (occurrence: None)
  Receive Date: 20110422
  Receipt Date: 20110413
  Transmission Date: 20111010
  Serious: Yes (Hospitalization)
  Sender: FDA-Public Use
  Company Number: US-ASTRAZENECA-2011SE21362

PATIENT
  Age: 49 Year
  Sex: Female
  Weight: 59 kg

DRUGS (9)
  1. PHENERGAN HCL [Concomitant]
  2. LAMOTRIGINE [Concomitant]
  3. SEROQUEL [Suspect]
     Route: 048
     Dates: start: 20110401, end: 20110411
  4. SEROQUEL [Suspect]
     Indication: BIPOLAR DISORDER
     Route: 048
     Dates: start: 20080101, end: 20110401
  5. SITALOPRAM [Concomitant]
  6. DEPAKOTE [Concomitant]
  7. AMLODIPINE BUSYLATE [Concomitant]
  8. GABAPENTIN [Concomitant]
  9. KLONOPIN [Concomitant]
     Indication: PANIC ATTACK
     Dosage: TID

REACTIONS (9)
  - DRUG EFFECT DECREASED [None]
  - SUICIDE ATTEMPT [None]
  - BLOOD PRESSURE DECREASED [None]
  - DRUG DOSE OMISSION [None]
  - FOOT FRACTURE [None]
  - DEPRESSION [None]
  - PANIC ATTACK [None]
  - PANCREATITIS [None]
  - WITHDRAWAL SYNDROME [None]
